FAERS Safety Report 23742579 (Version 1)
Quarter: 2024Q2

REPORT INFORMATION
  Report Type: Spontaneous
  Country: US (occurrence: None)
  Receive Date: 20240412
  Receipt Date: 20240412
  Transmission Date: 20240716
  Serious: Yes (Death)
  Sender: FDA-Public Use
  Company Number: None

PATIENT
  Age: 71 Year
  Sex: Female

DRUGS (4)
  1. SKYRIZI [Suspect]
     Active Substance: RISANKIZUMAB-RZAA
     Indication: Psoriasis
     Dosage: 1502 MG/ML EVERY 12 WEEKS SUBCUTNEOUS?
     Route: 058
     Dates: start: 20230802, end: 20240412
  2. LOSARTAN [Concomitant]
     Active Substance: LOSARTAN
  3. JARDIANCE [Concomitant]
     Active Substance: EMPAGLIFLOZIN
  4. LANTUS SOLOSTAR [Concomitant]
     Active Substance: INSULIN GLARGINE

REACTIONS (1)
  - Death [None]

NARRATIVE: CASE EVENT DATE: 20240412
